FAERS Safety Report 4442717-9 (Version None)
Quarter: 2004Q3

REPORT INFORMATION
  Report Type: 
  Country: None (occurrence: None)
  Receive Date: 20040903
  Receipt Date: 20040617
  Transmission Date: 20050211
  Serious: Yes (Other)
  Sender: FDA-Public Use
  Company Number: 2004UW12654

PATIENT
  Age: 77 Year
  Sex: Female
  Weight: 67.1324 kg

DRUGS (10)
  1. CRESTOR [Suspect]
     Indication: BLOOD CHOLESTEROL INCREASED
     Dosage: 10 MG PO
     Route: 048
     Dates: start: 20040609
  2. PREVACID [Concomitant]
  3. ZYRTEC [Concomitant]
  4. SINGULAIR [Concomitant]
  5. NO MATCH [Concomitant]
  6. NEURONTIN [Concomitant]
  7. CALTRATE + D [Concomitant]
  8. GLUCOSAMINE MSN TRIPLE STRENGTH [Concomitant]
  9. HUMBID [Concomitant]
  10. CENTRUM [Concomitant]

REACTIONS (2)
  - ABDOMINAL PAIN UPPER [None]
  - FREQUENT BOWEL MOVEMENTS [None]
